FAERS Safety Report 14102122 (Version 1)
Quarter: 2017Q4

REPORT INFORMATION
  Report Type: Spontaneous
  Country: FR (occurrence: FR)
  Receive Date: 20171018
  Receipt Date: 20171018
  Transmission Date: 20180321
  Serious: Yes (Other)
  Sender: FDA-Public Use
  Company Number: FR-LPDUSPRD-20171403

PATIENT
  Age: 48 Year
  Sex: Female

DRUGS (4)
  1. LUTENYL [Concomitant]
     Active Substance: NOMEGESTROL ACETATE
     Dosage: 5 MG
     Route: 048
  2. SEROPLEX [Concomitant]
     Active Substance: ESCITALOPRAM OXALATE
     Dosage: 10MG, 1 IN 1 D
     Route: 048
  3. SERESTA [Concomitant]
     Active Substance: OXAZEPAM
     Dosage: 5 MG, 1 IN 1 D
     Route: 048
  4. VENOFER [Suspect]
     Active Substance: IRON SUCROSE
     Dosage: 150 MG
     Route: 041
     Dates: start: 20170903, end: 20170905

REACTIONS (3)
  - Portal vein thrombosis [Unknown]
  - Splenomegaly [Unknown]
  - Thrombocytopenia [Unknown]

NARRATIVE: CASE EVENT DATE: 20170907
